FAERS Safety Report 8315837 (Version 3)
Quarter: 2013Q1

REPORT INFORMATION
  Report Type: Spontaneous
  Country: JP (occurrence: JP)
  Receive Date: 20111229
  Receipt Date: 20130114
  Transmission Date: 20140127
  Serious: Yes (Hospitalization)
  Sender: FDA-Public Use
  Company Number: JP-GLAXOSMITHKLINE-B0770900A

PATIENT
  Age: 29 Year
  Sex: Female

DRUGS (5)
  1. LAMICTAL [Suspect]
     Indication: BIPOLAR DISORDER
     Dosage: 25MG ALTERNATE DAYS
     Route: 048
     Dates: start: 20111121, end: 20111204
  2. LAMICTAL [Suspect]
     Indication: BIPOLAR DISORDER
     Dosage: 25MG PER DAY
     Route: 048
     Dates: start: 20111205, end: 20111216
  3. PAXIL [Concomitant]
     Indication: DEPRESSION
     Dosage: 10MG PER DAY
     Route: 048
     Dates: start: 20111121
  4. DEPAKENE-R [Concomitant]
     Indication: BIPOLAR DISORDER
     Dosage: 200MG PER DAY
     Route: 048
     Dates: start: 20111121, end: 20111216
  5. ROHYPNOL [Concomitant]
     Indication: INSOMNIA
     Dosage: 4MG PER DAY
     Route: 065
     Dates: start: 20111121

REACTIONS (4)
  - Erythema multiforme [Recovering/Resolving]
  - Drug eruption [Unknown]
  - Skin disorder [Unknown]
  - Hyperthermia [Unknown]
